FAERS Safety Report 25644079 (Version 3)
Quarter: 2025Q3

REPORT INFORMATION
  Report Type: Spontaneous
  Country: AR (occurrence: AR)
  Receive Date: 20250805
  Receipt Date: 20250820
  Transmission Date: 20251021
  Serious: Yes (Other)
  Sender: MYLAN
  Company Number: AR-MYLANLABS-2025M1029866

PATIENT
  Age: 38 Year
  Sex: Male

DRUGS (16)
  1. CLOZAPINE [Suspect]
     Active Substance: CLOZAPINE
     Indication: Product used for unknown indication
  2. CLOZAPINE [Suspect]
     Active Substance: CLOZAPINE
     Route: 065
  3. CLOZAPINE [Suspect]
     Active Substance: CLOZAPINE
     Route: 065
  4. CLOZAPINE [Suspect]
     Active Substance: CLOZAPINE
  5. CLONAZEPAM [Concomitant]
     Active Substance: CLONAZEPAM
     Dosage: 3.5 DOSAGE FORM, QD (PER DAY)
  6. CLONAZEPAM [Concomitant]
     Active Substance: CLONAZEPAM
     Dosage: 3.5 DOSAGE FORM, QD (PER DAY)
     Route: 065
  7. CLONAZEPAM [Concomitant]
     Active Substance: CLONAZEPAM
     Dosage: 3.5 DOSAGE FORM, QD (PER DAY)
     Route: 065
  8. CLONAZEPAM [Concomitant]
     Active Substance: CLONAZEPAM
     Dosage: 3.5 DOSAGE FORM, QD (PER DAY)
  9. VALPROATE [Concomitant]
     Active Substance: VALPROIC ACID
     Dosage: 2 DOSAGE FORM, QD (PER DAY)
  10. VALPROATE [Concomitant]
     Active Substance: VALPROIC ACID
     Dosage: 2 DOSAGE FORM, QD (PER DAY)
     Route: 065
  11. VALPROATE [Concomitant]
     Active Substance: VALPROIC ACID
     Dosage: 2 DOSAGE FORM, QD (PER DAY)
     Route: 065
  12. VALPROATE [Concomitant]
     Active Substance: VALPROIC ACID
     Dosage: 2 DOSAGE FORM, QD (PER DAY)
  13. BIPERIDEN [Concomitant]
     Active Substance: BIPERIDEN
     Dosage: 2 MILLIGRAM, QD (ONCE DAILY)
  14. BIPERIDEN [Concomitant]
     Active Substance: BIPERIDEN
     Dosage: 2 MILLIGRAM, QD (ONCE DAILY)
     Route: 048
  15. BIPERIDEN [Concomitant]
     Active Substance: BIPERIDEN
     Dosage: 2 MILLIGRAM, QD (ONCE DAILY)
     Route: 048
  16. BIPERIDEN [Concomitant]
     Active Substance: BIPERIDEN
     Dosage: 2 MILLIGRAM, QD (ONCE DAILY)

REACTIONS (2)
  - Intellectual disability [Unknown]
  - Neutropenia [Recovered/Resolved]

NARRATIVE: CASE EVENT DATE: 20250331
